FAERS Safety Report 6933727-8 (Version None)
Quarter: 2010Q3

REPORT INFORMATION
  Report Type: 
  Country: None (occurrence: None)
  Receive Date: 20100817
  Receipt Date: 20100811
  Transmission Date: 20110219
  Serious: Yes (Hospitalization, Disabling)
  Sender: FDA-Public Use
  Company Number: 017040

PATIENT
  Age: 85 Year
  Sex: Female

DRUGS (8)
  1. ISOSORBIDE MONONITRATE [Suspect]
     Indication: ANGINA PECTORIS
  2. PREMARIN [Suspect]
     Indication: VAGINAL HAEMORRHAGE
     Dosage: (VAGINAL)
     Route: 067
     Dates: start: 20100625, end: 20100716
  3. ASPIRIN [Concomitant]
  4. ALPRENOLOL HYDROCHLORIDE [Concomitant]
  5. FRUSEMIDE /00032601/ [Concomitant]
  6. LANSOPRAZOLE [Concomitant]
  7. NITROGLYCERIN [Concomitant]
  8. SIMVASTATIN [Concomitant]

REACTIONS (5)
  - ANGINA PECTORIS [None]
  - CONDITION AGGRAVATED [None]
  - DRUG INTERACTION [None]
  - FALL [None]
  - VAGINAL HAEMORRHAGE [None]
